FAERS Safety Report 4900660-2 (Version None)
Quarter: 2006Q1

REPORT INFORMATION
  Report Type: 
  Country: None (occurrence: None)
  Receive Date: 20060201
  Receipt Date: 20060110
  Transmission Date: 20060701
  Serious: Yes (Hospitalization, Other)
  Sender: FDA-Public Use
  Company Number: US200601001146

PATIENT
  Age: 49 Year
  Sex: Male

DRUGS (1)
  1. CYMBALTA [Suspect]
     Indication: NEUROPATHY PERIPHERAL
     Dosage: 60 MG, DAILY (1/D)
     Dates: start: 20051001

REACTIONS (4)
  - ABDOMINAL PAIN UPPER [None]
  - ACIDOSIS [None]
  - NAUSEA [None]
  - VOMITING [None]
